FAERS Safety Report 24591110 (Version 1)
Quarter: 2024Q4

REPORT INFORMATION
  Report Type: Spontaneous
  Country: SA (occurrence: SA)
  Receive Date: 20241107
  Receipt Date: 20241107
  Transmission Date: 20250114
  Serious: Yes (Other)
  Sender: SANOFI AVENTIS
  Company Number: SA-SA-2024SA317336

PATIENT
  Age: 24 Year
  Sex: Female

DRUGS (3)
  1. DUPILUMAB [Suspect]
     Active Substance: DUPILUMAB
     Indication: NSAID exacerbated respiratory disease
     Dosage: 600 MG, LOADING DOSE
  2. DUPILUMAB [Suspect]
     Active Substance: DUPILUMAB
     Indication: Allergic fungal rhinosinusitis
     Dosage: 300 MG, QOW
     Route: 058
  3. DUPILUMAB [Suspect]
     Active Substance: DUPILUMAB
     Dosage: UNK

REACTIONS (6)
  - Eosinophilic cellulitis [Recovering/Resolving]
  - Skin hyperpigmentation [Recovering/Resolving]
  - Blister [Recovering/Resolving]
  - Skin lesion [Recovering/Resolving]
  - Eosinophilia [Recovering/Resolving]
  - Off label use [Unknown]
